FAERS Safety Report 6230765-8 (Version None)
Quarter: 2009Q2

REPORT INFORMATION
  Report Type: 
  Country: None (occurrence: None)
  Receive Date: 20090616
  Receipt Date: 20090604
  Transmission Date: 20091009
  Serious: Yes (Other)
  Sender: FDA-Public Use
  Company Number: US-PFIZER INC-2009223617

PATIENT
  Sex: Female
  Weight: 93.878 kg

DRUGS (9)
  1. CHANTIX [Suspect]
     Indication: SMOKING CESSATION THERAPY
     Dosage: 0.5 MG, 1X/DAY
     Dates: start: 20090501
  2. CELEBREX [Suspect]
     Indication: OSTEOARTHRITIS
  3. NAPROXEN [Suspect]
     Indication: OSTEOARTHRITIS
  4. DARVOCET [Suspect]
     Indication: OSTEOARTHRITIS
  5. CARDIZEM CD [Concomitant]
     Dosage: UNK
  6. DETROL LA [Concomitant]
     Dosage: UNK
  7. NEXIUM [Concomitant]
     Dosage: UNK
  8. LEXAPRO [Concomitant]
     Dosage: UNK
  9. SEROQUEL [Concomitant]
     Dosage: UNK

REACTIONS (3)
  - ARTERIOVENOUS MALFORMATION [None]
  - GASTRIC HAEMORRHAGE [None]
  - RECTAL HAEMORRHAGE [None]
